FAERS Safety Report 8488911-1 (Version None)
Quarter: 2012Q3

REPORT INFORMATION
  Report Type: 
  Country: None (occurrence: None)
  Receive Date: 20120705
  Receipt Date: 20120625
  Transmission Date: 20120928
  Serious: Yes (Other)
  Sender: FDA-Public Use
  Company Number: AU-ROCHE-1083937

PATIENT
  Sex: Female

DRUGS (8)
  1. METHOTREXATE [Concomitant]
     Indication: RHEUMATOID ARTHRITIS
     Route: 048
  2. FOLIC ACID [Concomitant]
  3. PREDNISOLONE [Concomitant]
  4. ACTEMRA [Suspect]
     Indication: RHEUMATOID ARTHRITIS
     Route: 042
     Dates: start: 20120116
  5. MS CONTIN [Concomitant]
  6. COLOXYL [Concomitant]
  7. PANAMAX [Concomitant]
  8. RAMIPRIL [Concomitant]
     Indication: BLOOD PRESSURE
     Route: 048

REACTIONS (2)
  - ABDOMINAL PAIN LOWER [None]
  - INTERVERTEBRAL DISC PROTRUSION [None]
